FAERS Safety Report 6115097-0 (Version None)
Quarter: 2009Q1

REPORT INFORMATION
  Report Type: 
  Country: None (occurrence: None)
  Receive Date: 20090313
  Receipt Date: 20090305
  Transmission Date: 20090719
  Serious: Yes (Hospitalization)
  Sender: FDA-Public Use
  Company Number: B0564765A

PATIENT
  Age: 59 Year
  Sex: Male

DRUGS (1)
  1. LAMIVUDINE [Suspect]
     Dates: start: 20070201

REACTIONS (9)
  - ABDOMINAL PAIN [None]
  - ANOREXIA [None]
  - BLOOD LACTATE DEHYDROGENASE INCREASED [None]
  - HYPERAMYLASAEMIA [None]
  - LEUKOCYTOSIS [None]
  - MALAISE [None]
  - NAUSEA [None]
  - PANCREATITIS ACUTE [None]
  - VOMITING [None]
